FAERS Safety Report 7670323-1 (Version None)
Quarter: 2011Q3

REPORT INFORMATION
  Report Type: 
  Country: None (occurrence: None)
  Receive Date: 20110809
  Receipt Date: 20110804
  Transmission Date: 20111222
  Serious: No
  Sender: FDA-Public Use
  Company Number: US-BIOGENIDEC-2010BI028286

PATIENT
  Age: 46 Year
  Sex: Female

DRUGS (2)
  1. TYSABRI [Suspect]
     Indication: MULTIPLE SCLEROSIS
     Route: 042
     Dates: start: 20100708, end: 20110221
  2. TYSABRI [Suspect]
     Route: 042
     Dates: start: 20110526

REACTIONS (3)
  - NUCLEAR MAGNETIC RESONANCE IMAGING ABNORMAL [None]
  - HEADACHE [None]
  - DERMATITIS ALLERGIC [None]
